FAERS Safety Report 20110635 (Version 2)
Quarter: 2022Q2

REPORT INFORMATION
  Report Type: Spontaneous
  Country: JP (occurrence: JP)
  Receive Date: 20211124
  Receipt Date: 20220429
  Transmission Date: 20220721
  Serious: Yes (Hospitalization, Other)
  Sender: FDA-Public Use
  Company Number: JP-ELI_LILLY_AND_COMPANY-JP202004011265

PATIENT
  Age: 12 Year
  Sex: Female
  Weight: 17.9 kg

DRUGS (20)
  1. ADCIRCA [Suspect]
     Active Substance: TADALAFIL
     Indication: Pulmonary arterial hypertension
     Dosage: 18 MG, DAILY
     Route: 065
     Dates: start: 20171201, end: 20190319
  2. ADCIRCA [Suspect]
     Active Substance: TADALAFIL
     Dosage: UNK, UNKNOWN
     Route: 065
     Dates: start: 20190320, end: 20200312
  3. ADCIRCA [Suspect]
     Active Substance: TADALAFIL
     Dosage: 0.22 UNK
     Route: 065
     Dates: start: 20200313
  4. UPTRAVI [Suspect]
     Active Substance: SELEXIPAG
     Indication: Pulmonary arterial hypertension
     Dosage: 0.072 MG, BID
     Route: 048
     Dates: start: 20180130, end: 20180228
  5. UPTRAVI [Suspect]
     Active Substance: SELEXIPAG
     Dosage: 0.144 MG, BID
     Route: 048
     Dates: start: 20180501, end: 20180609
  6. UPTRAVI [Suspect]
     Active Substance: SELEXIPAG
     Dosage: 0.216 MG, BID
     Route: 048
     Dates: start: 20180614, end: 20180712
  7. UPTRAVI [Suspect]
     Active Substance: SELEXIPAG
     Dosage: 0.288 MG, BID
     Route: 048
     Dates: start: 20180713, end: 20180811
  8. UPTRAVI [Suspect]
     Active Substance: SELEXIPAG
     Dosage: 0.288 MG, BID
     Route: 048
     Dates: start: 20181023, end: 20191210
  9. UPTRAVI [Suspect]
     Active Substance: SELEXIPAG
     Dosage: 0.36 MG, BID
     Route: 048
     Dates: start: 20191211, end: 20200312
  10. UPTRAVI [Suspect]
     Active Substance: SELEXIPAG
     Dosage: 0.43 MG, BID
     Route: 048
     Dates: start: 20200313, end: 20201217
  11. UPTRAVI [Suspect]
     Active Substance: SELEXIPAG
     Dosage: 0.504 MG
     Route: 048
     Dates: start: 20201218
  12. OPSUMIT [Concomitant]
     Active Substance: MACITENTAN
     Indication: Pulmonary arterial hypertension
     Dosage: 3.6 MG, DAILY
     Route: 065
     Dates: start: 20171130, end: 20190319
  13. OPSUMIT [Concomitant]
     Active Substance: MACITENTAN
     Dosage: 3.8 UNK
     Route: 065
     Dates: start: 20190320, end: 20200312
  14. OPSUMIT [Concomitant]
     Active Substance: MACITENTAN
     Dosage: 3.8 UNK
     Route: 065
     Dates: start: 20200313
  15. DIGOXIN [Concomitant]
     Active Substance: DIGOXIN
     Indication: Product used for unknown indication
     Dosage: 0.1 MG, DAILY
     Route: 065
     Dates: start: 20141030, end: 20190319
  16. DIGOXIN [Concomitant]
     Active Substance: DIGOXIN
     Dosage: UNK UNK, UNKNOWN
     Route: 065
     Dates: start: 20190320
  17. FUROSEMIDE [Concomitant]
     Active Substance: FUROSEMIDE
     Indication: Product used for unknown indication
     Dosage: 32 MG, DAILY
     Route: 065
     Dates: start: 20170323
  18. SPIRONOLACTONE [Concomitant]
     Active Substance: SPIRONOLACTONE
     Indication: Product used for unknown indication
     Dosage: 32 MG, DAILY
     Route: 065
     Dates: start: 20170323
  19. ENALAPRIL MALEATE [Concomitant]
     Active Substance: ENALAPRIL MALEATE
     Indication: Product used for unknown indication
     Dosage: 3.6 MG, DAILY
     Route: 065
     Dates: start: 20180130, end: 20190319
  20. ENALAPRIL MALEATE [Concomitant]
     Active Substance: ENALAPRIL MALEATE
     Dosage: UNK, UNKNOWN
     Route: 065
     Dates: start: 20190320

REACTIONS (6)
  - Pneumonia mycoplasmal [Recovered/Resolved]
  - Hypotension [Recovered/Resolved]
  - Pyrexia [Recovered/Resolved]
  - Headache [Recovered/Resolved]
  - Headache [Recovering/Resolving]
  - Headache [Recovering/Resolving]

NARRATIVE: CASE EVENT DATE: 20180501
